FAERS Safety Report 11655027 (Version 2)
Quarter: 2015Q4

REPORT INFORMATION
  Report Type: Spontaneous
  Country: MY (occurrence: MY)
  Receive Date: 20151023
  Receipt Date: 20151103
  Transmission Date: 20160304
  Serious: Yes (Other)
  Sender: FDA-Public Use
  Company Number: MY-WATSON-2015-22142

PATIENT
  Sex: Female

DRUGS (5)
  1. TROPICAMIDE. [Concomitant]
     Active Substance: TROPICAMIDE
     Indication: IRIDOCYCLITIS
     Dosage: EVERY 12 HOURS
     Route: 031
  2. TRIAMCINOLONE ACETONIDE (WATSON LABORATORIES) [Suspect]
     Active Substance: TRIAMCINOLONE ACETONIDE
     Indication: IRIDOCYCLITIS
     Dosage: 20 MG, SINGLE
     Route: 057
  3. PRED FORTE [Suspect]
     Active Substance: PREDNISOLONE ACETATE
     Indication: IRIDOCYCLITIS
     Dosage: UNK, Q2H
     Route: 031
  4. PREDNISOLONE. [Concomitant]
     Active Substance: PREDNISOLONE
     Indication: IRIDOCYCLITIS
     Dosage: 1 MG/KG, UNKNOWN
     Route: 048
  5. TIMOLOL. [Concomitant]
     Active Substance: TIMOLOL
     Indication: IRIDOCYCLITIS
     Dosage: EVERY 12 HOURS
     Route: 031

REACTIONS (2)
  - Conjunctival haemorrhage [Recovered/Resolved]
  - Conjunctival ulcer [Recovered/Resolved]
